FAERS Safety Report 7433689-3 (Version None)
Quarter: 2011Q2

REPORT INFORMATION
  Report Type: 
  Country: None (occurrence: None)
  Receive Date: 20110422
  Receipt Date: 20110408
  Transmission Date: 20111010
  Serious: Yes (Other)
  Sender: FDA-Public Use
  Company Number: US-CELGENEUS-163-21880-10091174

PATIENT
  Sex: Female
  Weight: 55.388 kg

DRUGS (6)
  1. REVLIMID [Suspect]
     Dosage: 12.5 MILLIGRAM
     Route: 048
     Dates: start: 20090917
  2. REVLIMID [Suspect]
     Dosage: 10 MILLIGRAM
     Route: 048
     Dates: start: 20100101
  3. NEURONTIN [Concomitant]
     Route: 065
  4. REVLIMID [Suspect]
     Indication: MULTIPLE MYELOMA
     Dosage: 25 MILLIGRAM
     Route: 048
     Dates: start: 20090901
  5. ATIVAN [Concomitant]
     Route: 065
  6. VALTREX [Concomitant]
     Route: 065

REACTIONS (4)
  - MORTON'S NEUROMA [None]
  - SKIN ULCER [None]
  - PAIN IN EXTREMITY [None]
  - NEUROPATHY PERIPHERAL [None]
